FAERS Safety Report 13900088 (Version 1)
Quarter: 2017Q3

REPORT INFORMATION
  Report Type: Spontaneous
  Country: US (occurrence: US)
  Receive Date: 20170824
  Receipt Date: 20170824
  Transmission Date: 20171127
  Serious: Yes (Death)
  Sender: FDA-Public Use
  Company Number: US-R-PHARM US LLC-2017RPM00079

PATIENT
  Sex: Female

DRUGS (3)
  1. IXABEPILONE [Suspect]
     Active Substance: IXABEPILONE
     Indication: TRIPLE NEGATIVE BREAST CANCER
     Dosage: 40 MG/M2, EVERY 3 WEEKS
     Route: 065
  2. H2 BLOCKER [Concomitant]
     Dosage: 1 HOUR PRIOR TO EACH IXABEPILONE ADMINISTRATION
     Route: 065
  3. H1 BLOCKER [Concomitant]
     Dosage: 1 HOUR PRIOR TO EACH IXABEPILONE ADMINISTRATION
     Route: 065

REACTIONS (1)
  - Neutropenic sepsis [Fatal]
